FAERS Safety Report 19873226 (Version 9)
Quarter: 2022Q3

REPORT INFORMATION
  Report Type: Spontaneous
  Country: CA (occurrence: CA)
  Receive Date: 20210923
  Receipt Date: 20220919
  Transmission Date: 20221026
  Serious: Yes (Other)
  Sender: FDA-Public Use
  Company Number: CA-PFIZER INC-202101240920

PATIENT
  Age: 4 Year
  Sex: Female

DRUGS (4)
  1. SOMATROPIN [Suspect]
     Active Substance: SOMATROPIN
     Indication: Growth hormone deficiency
     Dosage: 300 UG, 1X/DAY
     Route: 058
     Dates: start: 2021
  2. SOMATROPIN [Suspect]
     Active Substance: SOMATROPIN
     Dosage: 300 UG, 1X/DAY
     Route: 058
     Dates: start: 20210811
  3. ALVESCO [Concomitant]
     Active Substance: CICLESONIDE
     Dosage: 1 DF, 1X/DAY 1 PUFF ONCE A DAY
  4. LAX [BISACODYL] [Concomitant]
     Dosage: UNK, LAX-A-DAY

REACTIONS (12)
  - COVID-19 [Recovered/Resolved]
  - Fatigue [Recovered/Resolved]
  - Petit mal epilepsy [Unknown]
  - Drug ineffective [Unknown]
  - Excessive eye blinking [Unknown]
  - Headache [Unknown]
  - Pyrexia [Recovered/Resolved]
  - Hypoglycaemia [Unknown]
  - Wrong technique in device usage process [Unknown]
  - Device issue [Unknown]
  - Device defective [Unknown]
  - Device occlusion [Unknown]

NARRATIVE: CASE EVENT DATE: 20210101
